FAERS Safety Report 9716862 (Version 1)
Quarter: 2013Q4

REPORT INFORMATION
  Report Type: Report from Study
  Country: US (occurrence: US)
  Receive Date: 20131127
  Receipt Date: 20131127
  Transmission Date: 20140711
  Serious: Yes (Hospitalization, Other)
  Sender: FDA-Public Use
  Company Number: US-ABBVIE-13P-163-1172368-00

PATIENT
  Age: 66 Year
  Sex: Female
  Weight: 56.75 kg

DRUGS (15)
  1. HUMIRA [Suspect]
     Indication: CROHN^S DISEASE
     Dates: start: 201301, end: 201310
  2. HUMIRA [Suspect]
     Indication: PSORIATIC ARTHROPATHY
  3. JANUMET [Concomitant]
     Indication: TYPE 2 DIABETES MELLITUS
  4. LIPITOR [Concomitant]
     Indication: BLOOD CHOLESTEROL INCREASED
  5. PROTONIX [Concomitant]
     Indication: GASTROOESOPHAGEAL REFLUX DISEASE
  6. DIOVAN [Concomitant]
     Indication: HYPERTENSION
  7. FLOMAX [Concomitant]
     Indication: HYPERTONIC BLADDER
  8. FOLIC ACID [Concomitant]
     Indication: PRODUCT USED FOR UNKNOWN INDICATION
  9. METHOTREXATE [Concomitant]
     Indication: CROHN^S DISEASE
  10. METHOTREXATE [Concomitant]
     Indication: PSORIATIC ARTHROPATHY
  11. MYRBETRIQ [Concomitant]
     Indication: HYPERTONIC BLADDER
  12. SLOW FE [Concomitant]
     Indication: MINERAL SUPPLEMENTATION
  13. VITAMIN D [Concomitant]
     Indication: VITAMIN SUPPLEMENTATION
  14. SYNTHROID [Concomitant]
     Indication: THYROIDECTOMY
  15. ELAVIL [Concomitant]
     Indication: FIBROMYALGIA

REACTIONS (6)
  - Gallbladder perforation [Not Recovered/Not Resolved]
  - Gallbladder disorder [Recovered/Resolved]
  - Cholecystitis infective [Recovered/Resolved]
  - Sepsis [Recovered/Resolved]
  - Abdominal pain [Recovered/Resolved]
  - Cardiac failure [Unknown]
